FAERS Safety Report 5831731-4 (Version None)
Quarter: 2008Q3

REPORT INFORMATION
  Report Type: 
  Country: None (occurrence: None)
  Receive Date: 20080803
  Receipt Date: 20080723
  Transmission Date: 20090109
  Serious: Yes (Hospitalization)
  Sender: FDA-Public Use
  Company Number: PHHY2008MX01159

PATIENT
  Sex: Female

DRUGS (3)
  1. DIOVAN HCT [Suspect]
     Indication: HYPERTENSION
     Dosage: 1 TABLET (160/12.5 MG) PER DAY
     Route: 048
     Dates: start: 20040601
  2. OMEPRAZOL ^ACYFABRIK^ [Concomitant]
     Dosage: 1 TABLET PER DAY
  3. ADALAT [Concomitant]
     Indication: HYPERTENSION

REACTIONS (5)
  - ASPHYXIA [None]
  - COUGH [None]
  - FACE OEDEMA [None]
  - OEDEMA PERIPHERAL [None]
  - PNEUMONIA [None]
